FAERS Safety Report 9098985 (Version 1)
Quarter: 2013Q1

REPORT INFORMATION
  Report Type: Spontaneous
  Country: NL (occurrence: NL)
  Receive Date: 20130214
  Receipt Date: 20130214
  Transmission Date: 20140127
  Serious: Yes (Hospitalization)
  Sender: FDA-Public Use
  Company Number: NL-ELI_LILLY_AND_COMPANY-NL201302001769

PATIENT
  Age: 48 Year
  Sex: Male
  Weight: 140 kg

DRUGS (7)
  1. TERIPARATIDE [Suspect]
     Indication: OSTEOPOROSIS
     Dosage: UNK
     Dates: start: 20120908
  2. ETALPHA [Concomitant]
     Dosage: .25 UG, UNK
  3. LEVOTHYROXIN [Concomitant]
     Dosage: 200 UG, UNK
  4. SIMVASTATINE [Concomitant]
     Dosage: 20 MG, UNK
  5. ACETYLSALICYLZUUR [Concomitant]
     Dosage: 80 MG, UNK
  6. VALSARTAN/HYDROCHLOORTHIAZIDE [Concomitant]
     Dosage: UNK, QD
  7. CALCIUM CARBONATE [Concomitant]
     Dosage: 2.5 G, UNK

REACTIONS (1)
  - Bone pain [Not Recovered/Not Resolved]
